FAERS Safety Report 23510100 (Version 4)
Quarter: 2024Q2

REPORT INFORMATION
  Report Type: Spontaneous
  Country: GB (occurrence: GB)
  Receive Date: 20240211
  Receipt Date: 20240624
  Transmission Date: 20240716
  Serious: Yes (Hospitalization, Other)
  Sender: FDA-Public Use
  Company Number: GB-AUROBINDO-AUR-APL-2024-005975

PATIENT
  Age: 4 Decade
  Sex: Male

DRUGS (3)
  1. LISINOPRIL [Suspect]
     Active Substance: LISINOPRIL
     Indication: Hypertension
     Dosage: 10 MILLIGRAM, ONCE A DAY
     Route: 065
  2. SYMBICORT [Concomitant]
     Active Substance: BUDESONIDE\FORMOTEROL FUMARATE DIHYDRATE
     Indication: Asthma
     Dosage: 200/6
     Route: 065
  3. ALBUTEROL [Concomitant]
     Active Substance: ALBUTEROL
     Indication: Asthma
     Dosage: UNK
     Route: 065

REACTIONS (5)
  - Drug-induced liver injury [Recovering/Resolving]
  - Psoriasis [Recovered/Resolved]
  - Condition aggravated [Recovering/Resolving]
  - Rash vesicular [Recovering/Resolving]
  - Jaundice cholestatic [Recovered/Resolved]
